FAERS Safety Report 9894294 (Version 1)
Quarter: 2014Q1

REPORT INFORMATION
  Report Type: Spontaneous
  Country: JP (occurrence: JP)
  Receive Date: 20140213
  Receipt Date: 20140213
  Transmission Date: 20141002
  Serious: Yes (Hospitalization)
  Sender: FDA-Public Use
  Company Number: JP-GLAXOSMITHKLINE-B0968321A

PATIENT
  Sex: 0

DRUGS (6)
  1. ULTIVA [Suspect]
     Indication: INDUCTION OF ANAESTHESIA
     Route: 064
  2. SALBUTAMOL [Suspect]
     Indication: PRODUCT USED FOR UNKNOWN INDICATION
     Route: 064
  3. MEPIVACAINE [Suspect]
     Indication: PRODUCT USED FOR UNKNOWN INDICATION
     Route: 064
  4. PROPOFOL [Suspect]
     Indication: INDUCTION OF ANAESTHESIA
     Route: 064
  5. SEVOFLURANE [Suspect]
     Indication: MAINTENANCE OF ANAESTHESIA
     Route: 064
  6. LEVOBUPIVACAINE [Suspect]
     Indication: MAINTENANCE OF ANAESTHESIA
     Route: 064

REACTIONS (2)
  - Respiration abnormal [Recovered/Resolved]
  - Foetal exposure during pregnancy [Unknown]
